FAERS Safety Report 9989078 (Version 1)
Quarter: 2014Q1

REPORT INFORMATION
  Report Type: Spontaneous
  Country: PR (occurrence: PR)
  Receive Date: 20140310
  Receipt Date: 20140310
  Transmission Date: 20141002
  Serious: No
  Sender: FDA-Public Use
  Company Number: PR-ABBVIE-13P-131-1135736-00

PATIENT
  Age: 39 Year
  Sex: Female
  Weight: 65.83 kg

DRUGS (3)
  1. HUMIRA [Suspect]
     Indication: RHEUMATOID ARTHRITIS
     Dates: start: 201304
  2. METEFORTA [Concomitant]
     Indication: SUPPLEMENTATION THERAPY
  3. FLESSERIL [Concomitant]
     Indication: PRODUCT USED FOR UNKNOWN INDICATION

REACTIONS (2)
  - Depression [Not Recovered/Not Resolved]
  - Injection site pain [Not Recovered/Not Resolved]
